FAERS Safety Report 6986877-4 (Version None)
Quarter: 2010Q3

REPORT INFORMATION
  Report Type: 
  Country: None (occurrence: None)
  Receive Date: 20100915
  Receipt Date: 20090813
  Transmission Date: 20110219
  Serious: No
  Sender: FDA-Public Use
  Company Number: US-WYE-H10583209

PATIENT
  Sex: Female
  Weight: 59.02 kg

DRUGS (4)
  1. PRISTIQ [Suspect]
     Indication: DEPRESSION
     Route: 048
     Dates: start: 20090701, end: 20090701
  2. PRISTIQ [Suspect]
     Dates: start: 20090701
  3. LISINOPRIL [Concomitant]
     Indication: HYPERTENSION
     Dosage: DOSE UNKNOWN, DAILY
     Route: 048
  4. ZOCOR [Concomitant]
     Indication: BLOOD CHOLESTEROL INCREASED
     Dosage: DOSE UNKNOWN, DAILY
     Route: 048

REACTIONS (2)
  - DYSURIA [None]
  - URINARY RETENTION [None]
